FAERS Safety Report 19952414 (Version 1)
Quarter: 2021Q4

REPORT INFORMATION
  Report Type: Spontaneous
  Country: ES (occurrence: ES)
  Receive Date: 20211013
  Receipt Date: 20211013
  Transmission Date: 20220303
  Serious: Yes (Other)
  Sender: FDA-Public Use
  Company Number: ES-ALIMERA SCIENCES LIMITED-ES-A16013-21-000210

PATIENT
  Age: 12 Year
  Sex: Female

DRUGS (2)
  1. ILUVIEN [Suspect]
     Active Substance: FLUOCINOLONE ACETONIDE
     Indication: IRVAN syndrome
     Dosage: 0.25 MICROGRAM, QD - RIGHT EYE
     Route: 031
  2. ILUVIEN [Suspect]
     Active Substance: FLUOCINOLONE ACETONIDE
     Indication: Macular oedema
     Dosage: 0.25 MICROGRAM, QD - LEFT EYE
     Route: 031

REACTIONS (4)
  - Retinal laser coagulation [Recovered/Resolved]
  - Rebound effect [Recovered/Resolved]
  - Macular oedema [Recovered/Resolved]
  - Off label use [Unknown]
